FAERS Safety Report 7362568-5 (Version None)
Quarter: 2011Q1

REPORT INFORMATION
  Report Type: 
  Country: None (occurrence: None)
  Receive Date: 20110320
  Receipt Date: 20100908
  Transmission Date: 20110831
  Serious: Yes (Hospitalization, Other)
  Sender: FDA-Public Use
  Company Number: US-BAYER-200942789NA

PATIENT
  Sex: Female
  Weight: 111 kg

DRUGS (5)
  1. LOESTRIN 1.5/30 [Concomitant]
  2. ADVIL LIQUI-GELS [Concomitant]
     Dosage: UNK
     Dates: start: 20061101
  3. NAPROXEN [Concomitant]
     Dosage: UNK
     Dates: start: 20060801
  4. PRILOSEC [Concomitant]
     Dosage: 10 MG, CONT
     Route: 048
  5. YASMIN [Suspect]
     Indication: ORAL CONTRACEPTION
     Dosage: UNK
     Dates: start: 20041101, end: 20061101

REACTIONS (9)
  - PAIN [None]
  - CHOLECYSTITIS CHRONIC [None]
  - DIABETES MELLITUS [None]
  - DYSMENORRHOEA [None]
  - MENSTRUAL DISORDER [None]
  - CHOLELITHIASIS [None]
  - MENORRHAGIA [None]
  - PANCREATITIS [None]
  - CHOLECYSTECTOMY [None]
